FAERS Safety Report 9454901 (Version 1)
Quarter: 2013Q3

REPORT INFORMATION
  Report Type: Spontaneous
  Country: BR (occurrence: BR)
  Receive Date: 20130813
  Receipt Date: 20130813
  Transmission Date: 20140515
  Serious: Yes (Other)
  Sender: FDA-Public Use
  Company Number: BR-AMGEN-BRASP2013056419

PATIENT
  Age: 64 Year
  Sex: Female
  Weight: 65 kg

DRUGS (4)
  1. ENBREL [Suspect]
     Indication: RHEUMATOID ARTHRITIS
     Dosage: 50 MG, 1X/WEEK
     Route: 058
     Dates: start: 201010, end: 20130616
  2. RIVOTRIL [Concomitant]
     Indication: SLEEP DISORDER
     Dosage: 4 DROPS (UNSPECIFIED DOSE), UNSPECIFIED FREQUENCY
     Route: 048
  3. TRYPTANOL                          /00002204/ [Concomitant]
     Indication: SLEEP DISORDER
     Dosage: UNK
  4. CELEBRA [Concomitant]
     Indication: ARTHRITIS
     Dosage: 200 MG, 1X/DAY (AFTER LUNCH)

REACTIONS (1)
  - Breast cancer [Unknown]
